FAERS Safety Report 9308342 (Version 1)
Quarter: 2013Q2

REPORT INFORMATION
  Report Type: Spontaneous
  Country: FR (occurrence: FR)
  Receive Date: 20130524
  Receipt Date: 20130524
  Transmission Date: 20140414
  Serious: Yes (Death, Hospitalization)
  Sender: FDA-Public Use
  Company Number: FR-GLAXOSMITHKLINE-B0891651A

PATIENT
  Age: 70 Year
  Sex: Female

DRUGS (3)
  1. ARIXTRA [Suspect]
     Indication: CHEST PAIN
     Dosage: 7.5MG UNKNOWN
     Route: 058
     Dates: start: 20120721, end: 20120729
  2. KARDEGIC [Suspect]
     Dosage: 75MG PER DAY
     Route: 048
     Dates: end: 20120729
  3. BRILIQUE [Suspect]
     Route: 048
     Dates: start: 20120729

REACTIONS (23)
  - Subdural haematoma [Fatal]
  - Subarachnoid haemorrhage [Fatal]
  - Off label use [Unknown]
  - Malaise [Unknown]
  - Loss of consciousness [Unknown]
  - Fall [Unknown]
  - Atrial fibrillation [Unknown]
  - Nausea [Unknown]
  - Vomiting [Unknown]
  - Hemiplegia [Unknown]
  - Headache [Unknown]
  - Brain contusion [Unknown]
  - Brain herniation [Unknown]
  - Neurological decompensation [Unknown]
  - Diabetes insipidus [Unknown]
  - Mydriasis [Unknown]
  - Pupil fixed [Unknown]
  - Cardiac arrest [Unknown]
  - Haemodynamic instability [Unknown]
  - Tachyarrhythmia [None]
  - Atrial fibrillation [None]
  - Intracranial pressure increased [None]
  - Cerebrovascular insufficiency [None]
